FAERS Safety Report 9555974 (Version 2)
Quarter: 2013Q3

REPORT INFORMATION
  Report Type: Spontaneous
  Country: DE (occurrence: DE)
  Receive Date: 20130926
  Receipt Date: 20130926
  Transmission Date: 20140515
  Serious: Yes (Other)
  Sender: FDA-Public Use
  Company Number: DE-BAYER-200090127BVD

PATIENT
  Age: 42 Year
  Sex: Male

DRUGS (4)
  1. CIPROFLOXACIN [Suspect]
     Indication: LOCALISED INFECTION
  2. SOLOSIN [Concomitant]
  3. SPIZEF [Concomitant]
  4. RULID [Concomitant]

REACTIONS (6)
  - Type 1 diabetes mellitus [Not Recovered/Not Resolved]
  - Hypersensitivity [Recovered/Resolved]
  - Polyneuropathy [Not Recovered/Not Resolved]
  - Erythema [None]
  - Face oedema [None]
  - Hypersensitivity [None]
